FAERS Safety Report 8608202 (Version 3)
Quarter: 2013Q4

REPORT INFORMATION
  Report Type: Spontaneous
  Country: US (occurrence: US)
  Receive Date: 20120611
  Receipt Date: 20131128
  Transmission Date: 20140711
  Serious: Yes (Other)
  Sender: FDA-Public Use
  Company Number: US-ASTRAZENECA-2012SE35162

PATIENT
  Age: 23802 Day
  Sex: Female
  Weight: 88 kg

DRUGS (10)
  1. NEXIUM [Suspect]
     Indication: ULCER
     Route: 048
  2. NEXIUM [Suspect]
     Indication: GASTROOESOPHAGEAL REFLUX DISEASE
     Route: 048
  3. NEXIUM [Suspect]
     Indication: ULCER
     Route: 048
     Dates: start: 20120403
  4. NEXIUM [Suspect]
     Indication: GASTROOESOPHAGEAL REFLUX DISEASE
     Route: 048
     Dates: start: 20120403
  5. TUMS [Concomitant]
  6. GAVISCON [Concomitant]
  7. ROLAIDS [Concomitant]
  8. CALCIUM [Concomitant]
     Indication: BONE DISORDER
  9. VITAMIN D [Concomitant]
     Indication: BONE DISORDER
  10. AMLODIPINE [Concomitant]
     Indication: BLOOD PRESSURE ABNORMAL

REACTIONS (7)
  - Upper limb fracture [Unknown]
  - Osteoporosis [Unknown]
  - Multiple fractures [Unknown]
  - Calcium deficiency [Unknown]
  - Arthritis [Unknown]
  - Bone disorder [Unknown]
  - Vitamin D deficiency [Unknown]
